FAERS Safety Report 5441251-7 (Version None)
Quarter: 2007Q3

REPORT INFORMATION
  Report Type: 
  Country: None (occurrence: None)
  Receive Date: 20070901
  Receipt Date: 20070821
  Transmission Date: 20080115
  Serious: Yes (Other)
  Sender: FDA-Public Use
  Company Number: US-PFIZER INC-2007071066

PATIENT
  Sex: Female
  Weight: 67.272 kg

DRUGS (3)
  1. CHANTIX [Suspect]
     Indication: SMOKING CESSATION THERAPY
  2. ZOLOFT [Interacting]
  3. SEROTONIN [Suspect]

REACTIONS (11)
  - DRUG INTERACTION [None]
  - DRUG INTOLERANCE [None]
  - ELEVATED MOOD [None]
  - FATIGUE [None]
  - LYME DISEASE [None]
  - MUSCLE TWITCHING [None]
  - MUSCULAR WEAKNESS [None]
  - MYALGIA [None]
  - PAIN [None]
  - PARAESTHESIA [None]
  - YAWNING [None]
